FAERS Safety Report 11109160 (Version 1)
Quarter: 2015Q2

REPORT INFORMATION
  Report Type: Spontaneous
  Country: IE (occurrence: IE)
  Receive Date: 20150513
  Receipt Date: 20150513
  Transmission Date: 20150821
  Serious: Yes (Other)
  Sender: FDA-Public Use
  Company Number: IE-AMGEN-IRLSP2015044317

PATIENT
  Age: 63 Year
  Sex: Female

DRUGS (1)
  1. PROLIA [Suspect]
     Active Substance: DENOSUMAB
     Indication: PRODUCT USED FOR UNKNOWN INDICATION
     Dosage: UNK
     Route: 065

REACTIONS (13)
  - Pain [Unknown]
  - Unevaluable event [Unknown]
  - Fatigue [Unknown]
  - Agitation [Unknown]
  - Depression [Unknown]
  - Feeling abnormal [Unknown]
  - Insomnia [Unknown]
  - Ear pain [Unknown]
  - Asthenia [Unknown]
  - Decreased appetite [Unknown]
  - Kidney infection [Unknown]
  - Malaise [Unknown]
  - Mood altered [Unknown]

NARRATIVE: CASE EVENT DATE: 201501
